FAERS Safety Report 9322022 (Version 2)
Quarter: 2013Q2

REPORT INFORMATION
  Report Type: Spontaneous
  Country: JP (occurrence: None)
  Receive Date: 20130529
  Receipt Date: 20130607
  Transmission Date: 20140414
  Serious: No
  Sender: FDA-Public Use
  Company Number: VAL_02540_2013

PATIENT
  Sex: 0
  Weight: 2.7 kg

DRUGS (2)
  1. LOPRESSOR [Suspect]
     Indication: MATERNAL EXPOSURE DURING PREGNANCY
     Route: 064
  2. LOPRESSOR [Suspect]
     Route: 064

REACTIONS (3)
  - Caesarean section [None]
  - Maternal drugs affecting foetus [None]
  - Foetal distress syndrome [None]
